FAERS Safety Report 11687280 (Version 1)
Quarter: 2015Q4

REPORT INFORMATION
  Report Type: Spontaneous
  Country: BR (occurrence: BR)
  Receive Date: 20151030
  Receipt Date: 20151030
  Transmission Date: 20160304
  Serious: Yes (Other)
  Sender: FDA-Public Use
  Company Number: PHHY2015BR138320

PATIENT
  Age: 37 Year
  Sex: Female

DRUGS (1)
  1. JULIET [Suspect]
     Active Substance: DESOGESTREL
     Indication: CONTRACEPTION
     Dosage: 0.075 MG, QD
     Route: 065
     Dates: start: 201509

REACTIONS (5)
  - Headache [Unknown]
  - Vomiting [Unknown]
  - Feeling abnormal [Unknown]
  - Nausea [Unknown]
  - Migraine [Unknown]
